FAERS Safety Report 8167356-8 (Version None)
Quarter: 2012Q1

REPORT INFORMATION
  Report Type: 
  Country: None (occurrence: None)
  Receive Date: 20120103
  Receipt Date: 20111028
  Transmission Date: 20120608
  Serious: No
  Sender: FDA-Public Use
  Company Number: AE-2011-002199

PATIENT
  Age: 55 Year
  Sex: Female
  Weight: 122.7 kg

DRUGS (12)
  1. PREVACID [Concomitant]
  2. RIBVIRIN (RIBAVIRIN) [Concomitant]
  3. PEGASYS [Concomitant]
  4. PERCOCET [Concomitant]
  5. METFORMIN HCL [Concomitant]
  6. INCIVEK [Suspect]
     Dosage: 2250 MG (750 MG, 3 IN 1 D),ORAL
     Route: 048
     Dates: start: 20110930
  7. OXYCONTIN [Concomitant]
  8. METHADONE HCL [Concomitant]
  9. VICODIN [Concomitant]
  10. OMEPRAZOLE [Concomitant]
  11. TESSALON [Concomitant]
  12. ALBUTEROL [Concomitant]

REACTIONS (3)
  - NAUSEA [None]
  - MIGRAINE [None]
  - RASH PRURITIC [None]
